FAERS Safety Report 6809383-6 (Version None)
Quarter: 2010Q2

REPORT INFORMATION
  Report Type: 
  Country: None (occurrence: None)
  Receive Date: 20100630
  Receipt Date: 20100621
  Transmission Date: 20101027
  Serious: Yes (Other)
  Sender: FDA-Public Use
  Company Number: AU-ASTRAZENECA-2010SE20298

PATIENT
  Sex: Female
  Weight: 65 kg

DRUGS (1)
  1. MARCAINE [Suspect]
     Indication: CAESAREAN SECTION
     Route: 037
     Dates: start: 20100430, end: 20100430

REACTIONS (1)
  - DRUG EFFECT DELAYED [None]
